FAERS Safety Report 12425850 (Version 3)
Quarter: 2018Q2

REPORT INFORMATION
  Report Type: Spontaneous
  Country: AT (occurrence: AT)
  Receive Date: 20160601
  Receipt Date: 20180507
  Transmission Date: 20180711
  Serious: Yes (Death)
  Sender: FDA-Public Use
  Company Number: AT-PROMETHEUS LABORATORIES-2016PL000022

PATIENT
  Age: 33 Year
  Sex: Female

DRUGS (5)
  1. PROLEUKIN [Suspect]
     Active Substance: ALDESLEUKIN
     Indication: RENAL CELL CARCINOMA
     Dosage: UNK UNKNOWN, UNK
     Route: 058
     Dates: end: 2005
  2. IFN ALPHA [Concomitant]
     Active Substance: INTERFERON ALFA-2A OR INTERFERON ALFA-2B
  3. PROPRANOLOL HYDROCHLORIDE. [Concomitant]
     Active Substance: PROPRANOLOL HYDROCHLORIDE
  4. BEVACIZUMAB. [Concomitant]
     Active Substance: BEVACIZUMAB
  5. GEMZAR [Concomitant]
     Active Substance: GEMCITABINE HYDROCHLORIDE

REACTIONS (3)
  - Malignant neoplasm progression [Unknown]
  - Death [Fatal]
  - Renal cell carcinoma [Unknown]

NARRATIVE: CASE EVENT DATE: 20050627
